FAERS Safety Report 6742713-2 (Version None)
Quarter: 2010Q2

REPORT INFORMATION
  Report Type: 
  Country: None (occurrence: None)
  Receive Date: 20100526
  Receipt Date: 20100113
  Transmission Date: 20101027
  Serious: No
  Sender: FDA-Public Use
  Company Number: US-ABBOTT-10P-163-0619944-00

PATIENT
  Sex: Male
  Weight: 77.18 kg

DRUGS (13)
  1. ZEMPLAR [Suspect]
     Indication: RENAL FAILURE CHRONIC
     Route: 048
     Dates: start: 20090401
  2. ZEMPLAR [Suspect]
     Indication: MUSCULAR WEAKNESS
  3. ZEMPLAR [Suspect]
     Indication: VITAMIN D DEFICIENCY
  4. LASIX [Concomitant]
     Indication: DRUG USE FOR UNKNOWN INDICATION
  5. GLUCOSAMINE + CHONDROITIN [Concomitant]
     Indication: ARTHROPATHY
  6. NEPHRO-VITE [Concomitant]
     Indication: DRUG USE FOR UNKNOWN INDICATION
  7. ALLOPURINOL [Concomitant]
     Indication: DRUG USE FOR UNKNOWN INDICATION
     Route: 048
  8. ARICEPT [Concomitant]
     Indication: DRUG USE FOR UNKNOWN INDICATION
  9. SODIUM BICARBONATE [Concomitant]
     Indication: METABOLIC ACIDOSIS
     Dosage: BEFORE LUNCH DAILY
     Route: 048
  10. CALCIUM BICARBONATE [Concomitant]
     Indication: METABOLIC ACIDOSIS
     Dosage: BEFORE LUNCH DAILY
     Route: 048
  11. ASPIRIN [Concomitant]
     Indication: DRUG USE FOR UNKNOWN INDICATION
     Dosage: DAILY AT HOUR OF SLEEP
     Route: 048
  12. AVAPRO [Concomitant]
     Indication: HYPERTENSION
  13. IRON [Concomitant]
     Indication: DRUG USE FOR UNKNOWN INDICATION

REACTIONS (3)
  - CONSTIPATION [None]
  - MUSCULAR WEAKNESS [None]
  - PAIN IN EXTREMITY [None]
